FAERS Safety Report 9443222 (Version 1)
Quarter: 2013Q3

REPORT INFORMATION
  Report Type: Spontaneous
  Country: US (occurrence: US)
  Receive Date: 20130806
  Receipt Date: 20130806
  Transmission Date: 20140515
  Serious: Yes (Hospitalization, Disabling)
  Sender: FDA-Public Use
  Company Number: US-GLAXOSMITHKLINE-A0787476A

PATIENT
  Age: 55 Year
  Sex: Female
  Weight: 95.9 kg

DRUGS (1)
  1. AVANDIA [Suspect]
     Indication: DIABETES MELLITUS
     Dosage: 4MG TWICE PER DAY
     Route: 048
     Dates: start: 200001, end: 200312

REACTIONS (6)
  - Heart injury [Unknown]
  - Thrombosis [Unknown]
  - Coronary artery bypass [Unknown]
  - Pulmonary hypertension [Unknown]
  - Right ventricular dysfunction [Unknown]
  - Renal failure acute [Unknown]
